FAERS Safety Report 5714192-5 (Version None)
Quarter: 2008Q2

REPORT INFORMATION
  Report Type: 
  Country: None (occurrence: None)
  Receive Date: 20080423
  Receipt Date: 20070612
  Transmission Date: 20081010
  Serious: No
  Sender: FDA-Public Use
  Company Number: US-KINGPHARMUSA00001-K200700721

PATIENT

DRUGS (8)
  1. SKELAXIN [Suspect]
     Indication: PARKINSON'S DISEASE
     Dosage: 800 MG, TID
     Route: 048
     Dates: start: 20070601, end: 20070612
  2. PROTONIX /01263201/ [Concomitant]
     Indication: PROPHYLAXIS
     Route: 048
  3. PROMETRIUM [Concomitant]
     Indication: HORMONE REPLACEMENT THERAPY
     Route: 048
  4. HORMONES AND RELATED AGENTS [Concomitant]
     Indication: HORMONE REPLACEMENT THERAPY
     Route: 062
  5. VALTREX [Concomitant]
     Route: 048
  6. DOXYCYCLINE [Concomitant]
     Route: 048
  7. LORAZEPAM [Concomitant]
     Dosage: 1/2 TABLET, PRN
  8. LORTAB [Concomitant]
     Dosage: UNK, PRN

REACTIONS (4)
  - ABDOMINAL PAIN UPPER [None]
  - ANOREXIA [None]
  - INSOMNIA [None]
  - NAUSEA [None]
